FAERS Safety Report 10663937 (Version 1)
Quarter: 2014Q4

REPORT INFORMATION
  Report Type: Spontaneous
  Country: US (occurrence: None)
  Receive Date: 20141218
  Receipt Date: 20141218
  Transmission Date: 20150529
  Serious: No
  Sender: FDA-Public Use
  Company Number: None

PATIENT
  Age: 28 Year
  Sex: Female
  Weight: 55.79 kg

DRUGS (1)
  1. BUPRENORPHINE HCL [Suspect]
     Active Substance: BUPRENORPHINE HYDROCHLORIDE
     Indication: SUBSTANCE ABUSE
     Dosage: 1 PILLS  THREE TIMES DAILY  SUBLINGUAL
     Route: 060
     Dates: start: 20141210, end: 20141217

REACTIONS (3)
  - Product substitution issue [None]
  - Product formulation issue [None]
  - Drug withdrawal syndrome [None]

NARRATIVE: CASE EVENT DATE: 20141216
